FAERS Safety Report 8798409 (Version 5)
Quarter: 2013Q4

REPORT INFORMATION
  Report Type: Spontaneous
  Country: US (occurrence: US)
  Receive Date: 20120920
  Receipt Date: 20131010
  Transmission Date: 20140711
  Serious: Yes (Hospitalization, Other)
  Sender: FDA-Public Use
  Company Number: US-009507513-1209USA004693

PATIENT
  Sex: Female
  Weight: 68.48 kg

DRUGS (7)
  1. FOSAMAX [Suspect]
     Indication: OSTEOPOROSIS
     Dosage: 70 MG, QW
     Route: 048
     Dates: start: 2002, end: 2010
  2. FOSAMAX [Suspect]
     Indication: OSTEOPENIA
  3. ALENDRONATE SODIUM [Suspect]
     Indication: OSTEOPENIA
     Dosage: 70 MG, QW
     Route: 048
  4. ALENDRONATE SODIUM [Suspect]
     Indication: OSTEOPOROSIS
  5. VITAMINS (UNSPECIFIED) [Concomitant]
     Indication: OSTEOPOROSIS
  6. CALCIUM (UNSPECIFIED) [Concomitant]
     Indication: OSTEOPOROSIS
  7. VITAMIN D (UNSPECIFIED) [Concomitant]
     Indication: OSTEOPOROSIS

REACTIONS (13)
  - Femur fracture [Unknown]
  - Open reduction of fracture [Unknown]
  - Low turnover osteopathy [Unknown]
  - Rotator cuff syndrome [Unknown]
  - Coronary artery disease [Unknown]
  - Cardiac murmur [Unknown]
  - Arthritis [Unknown]
  - Rotator cuff syndrome [Unknown]
  - Synovitis [Unknown]
  - Hypertension [Unknown]
  - Back pain [Unknown]
  - Arthralgia [Unknown]
  - Pain in extremity [Unknown]
